FAERS Safety Report 7378808-2 (Version None)
Quarter: 2011Q1

REPORT INFORMATION
  Report Type: 
  Country: None (occurrence: None)
  Receive Date: 20110328
  Receipt Date: 20110314
  Transmission Date: 20110831
  Serious: Yes (Other)
  Sender: FDA-Public Use
  Company Number: PHHY2011US05687

PATIENT
  Sex: Female

DRUGS (10)
  1. LOVAZA [Concomitant]
  2. VITAMIN B-12 [Concomitant]
  3. RECLAST [Suspect]
     Dosage: 5 MG/100ML, ONCE YEARLY
     Route: 042
     Dates: start: 20100714
  4. CHONDROITIN [Concomitant]
  5. CALCIUM [Concomitant]
  6. MULTI-VITAMINS [Concomitant]
  7. GLUCOSAMINE [Concomitant]
  8. ASPIRIN [Concomitant]
     Dosage: 81 MG, UNK
  9. OMEPRAZOLE [Concomitant]
  10. VITAMIN D [Concomitant]

REACTIONS (5)
  - ORAL INFECTION [None]
  - OSTEOMYELITIS [None]
  - TOOTH DISORDER [None]
  - DENTAL CARIES [None]
  - TOOTH ABSCESS [None]
